FAERS Safety Report 15244957 (Version 1)
Quarter: 2018Q3

REPORT INFORMATION
  Report Type: Spontaneous
  Country: US (occurrence: US)
  Receive Date: 20180713
  Receipt Date: 20180713
  Transmission Date: 20181010
  Serious: No
  Sender: FDA-Public Use
  Company Number: None

PATIENT
  Age: 61 Year
  Sex: Male
  Weight: 68.04 kg

DRUGS (1)
  1. LEVORPHANOL 2MG TABLET [Suspect]
     Active Substance: LEVORPHANOL
     Indication: PAIN
     Dosage: ?          QUANTITY:1.5 DF DOSAGE FORM;?
     Route: 048
     Dates: start: 20180511, end: 20180520

REACTIONS (5)
  - Depression [None]
  - Dysuria [None]
  - Drug ineffective [None]
  - Abdominal discomfort [None]
  - Formication [None]

NARRATIVE: CASE EVENT DATE: 20180512
